FAERS Safety Report 4955226-5 (Version None)
Quarter: 2006Q1

REPORT INFORMATION
  Report Type: 
  Country: None (occurrence: None)
  Receive Date: 20060328
  Receipt Date: 20060317
  Transmission Date: 20060701
  Serious: Yes (Hospitalization)
  Sender: FDA-Public Use
  Company Number: US-JNJFOC-20060304507

PATIENT
  Age: 35 Year
  Sex: Female

DRUGS (2)
  1. REMICADE [Suspect]
     Route: 042
  2. REMICADE [Suspect]
     Route: 042

REACTIONS (4)
  - INFECTION [None]
  - PLATELET COUNT DECREASED [None]
  - TUBAL LIGATION [None]
  - WHITE BLOOD CELL COUNT DECREASED [None]
